FAERS Safety Report 23783189 (Version 1)
Quarter: 2024Q2

REPORT INFORMATION
  Report Type: Report from Study
  Country: US (occurrence: US)
  Receive Date: 20240425
  Receipt Date: 20240425
  Transmission Date: 20240716
  Serious: Yes (Other)
  Sender: FDA-Public Use
  Company Number: US-GILEAD-2024-0670570

PATIENT
  Sex: Female

DRUGS (1)
  1. AZTREONAM LYSINE [Suspect]
     Active Substance: AZTREONAM LYSINE
     Indication: Cystic fibrosis
     Dosage: 1 VIAL (75 MG) VIA ALTERA NEBULIZER THREE TIMES DAILY, CYCLING 28 DAYS ON AND 28 DAYS OFF
     Route: 055
     Dates: start: 20230228

REACTIONS (1)
  - Pneumonia [Unknown]
